FAERS Safety Report 7931133-0 (Version None)
Quarter: 2011Q4

REPORT INFORMATION
  Report Type: 
  Country: None (occurrence: None)
  Receive Date: 20111121
  Receipt Date: 20111115
  Transmission Date: 20120403
  Serious: Yes (Hospitalization)
  Sender: FDA-Public Use
  Company Number: US-ALEXION-A201101567

PATIENT
  Sex: Male

DRUGS (2)
  1. SOLIRIS [Suspect]
     Indication: PAROXYSMAL NOCTURNAL HAEMOGLOBINURIA
     Dosage: UNK
     Route: 042
  2. ACETAMINOPHEN [Concomitant]
     Indication: PREMEDICATION
     Dosage: 650 MG UNK
     Route: 048

REACTIONS (6)
  - HAEMOGLOBINURIA [None]
  - THYROID CANCER [None]
  - ANAEMIA [None]
  - BLOOD COUNT ABNORMAL [None]
  - WEIGHT DECREASED [None]
  - FATIGUE [None]
